FAERS Safety Report 16656353 (Version 1)
Quarter: 2019Q3

REPORT INFORMATION
  Report Type: Spontaneous
  Country: US (occurrence: US)
  Receive Date: 20190801
  Receipt Date: 20190801
  Transmission Date: 20191004
  Serious: No
  Sender: FDA-Public Use
  Company Number: US-PACIRA-201800170

PATIENT
  Age: 72 Year
  Sex: Female
  Weight: 59 kg

DRUGS (2)
  1. BUPIVACAINE. [Suspect]
     Active Substance: BUPIVACAINE
     Indication: NERVE BLOCK
     Dosage: 50 MG, SINGLE, FREQUENCY : SINGLE
     Dates: start: 20181002, end: 20181002
  2. EXPAREL [Suspect]
     Active Substance: BUPIVACAINE
     Indication: NERVE BLOCK
     Dosage: 133 MG, SINGLE, FREQUENCY : SINGLE
     Dates: start: 20181002, end: 20181002

REACTIONS (1)
  - Phrenic nerve paralysis [Recovered/Resolved]

NARRATIVE: CASE EVENT DATE: 20181002
